FAERS Safety Report 7587341-4 (Version None)
Quarter: 2011Q3

REPORT INFORMATION
  Report Type: 
  Country: None (occurrence: None)
  Receive Date: 20110701
  Receipt Date: 20110622
  Transmission Date: 20111222
  Serious: Yes (Other)
  Sender: FDA-Public Use
  Company Number: US-AMGEN-USASP2011024161

PATIENT
  Sex: Female

DRUGS (3)
  1. TREXALL [Concomitant]
  2. ENBREL [Suspect]
     Indication: SYSTEMIC LUPUS ERYTHEMATOSUS
  3. ENBREL [Suspect]
     Indication: RHEUMATOID ARTHRITIS
     Dosage: 50 MG, QWK
     Dates: start: 20030201

REACTIONS (5)
  - PAIN IN EXTREMITY [None]
  - INJECTION SITE HAEMORRHAGE [None]
  - LIVER INJURY [None]
  - CIRCUMSTANCE OR INFORMATION CAPABLE OF LEADING TO MEDICATION ERROR [None]
  - RHEUMATOID ARTHRITIS [None]
